FAERS Safety Report 10607201 (Version 2)
Quarter: 2015Q1

REPORT INFORMATION
  Report Type: Spontaneous
  Country: CA (occurrence: CA)
  Receive Date: 20141125
  Receipt Date: 20150324
  Transmission Date: 20150720
  Serious: Yes (Hospitalization)
  Sender: FDA-Public Use
  Company Number: CA-ASTRAZENECA-2014SE88298

PATIENT
  Age: 82 Year
  Sex: Female
  Weight: 70 kg

DRUGS (21)
  1. COMBIGAN [Concomitant]
     Active Substance: BRIMONIDINE TARTRATE\TIMOLOL MALEATE
     Indication: CATARACT
     Dates: start: 2007
  2. CELECOXIB:IBUPROFEN/NAPROXEN CODE NOT BROKEN [Suspect]
     Active Substance: CELECOXIB\IBUPROFEN\NAPROXEN
     Indication: OSTEOARTHRITIS
     Dosage: THREE TIMES A DAY
     Route: 048
     Dates: start: 20130130, end: 20140122
  3. DETROL LA [Concomitant]
     Active Substance: TOLTERODINE TARTRATE
     Indication: AUTOMATIC BLADDER
     Dates: start: 2009
  4. NITROGLYCERIN. [Concomitant]
     Active Substance: NITROGLYCERIN
     Indication: MYOCARDIAL INFARCTION
     Dates: start: 20140123
  5. ATIVAN [Concomitant]
     Active Substance: LORAZEPAM
     Indication: ANXIETY
     Dates: start: 20140127
  6. D-TABS [Concomitant]
     Active Substance: CHOLECALCIFEROL
     Indication: VITAMIN SUPPLEMENTATION
     Dates: start: 2010
  7. PRO CAL D [Concomitant]
     Indication: VITAMIN SUPPLEMENTATION
     Dates: start: 2010
  8. ACETAMINOPHEN. [Concomitant]
     Active Substance: ACETAMINOPHEN
     Indication: OSTEOARTHRITIS
     Dates: start: 20140206
  9. VITAMIN B12 [Concomitant]
     Active Substance: CYANOCOBALAMIN
     Indication: ANAEMIA
     Dates: start: 20140620
  10. NEXIUM [Suspect]
     Active Substance: ESOMEPRAZOLE MAGNESIUM
     Indication: GASTRITIS PROPHYLAXIS
     Route: 048
     Dates: start: 20130130, end: 20140122
  11. DIAMICRON MR [Concomitant]
     Active Substance: GLICLAZIDE
     Indication: TYPE 2 DIABETES MELLITUS
     Dates: start: 20140620
  12. BRILINTA [Suspect]
     Active Substance: TICAGRELOR
     Indication: MYOCARDIAL INFARCTION
     Route: 048
     Dates: start: 20140203, end: 20140724
  13. LOPRESSOR [Concomitant]
     Active Substance: METOPROLOL TARTRATE
     Indication: HYPERTENSION
     Dates: start: 20140131
  14. GABAPENTIN. [Concomitant]
     Active Substance: GABAPENTIN
     Indication: DIABETIC AUTONOMIC NEUROPATHY
     Dates: start: 20140206
  15. PANTOLOC [Concomitant]
     Active Substance: PANTOPRAZOLE SODIUM
     Indication: GASTRITIS PROPHYLAXIS
     Dates: start: 20140620
  16. METFORMIN [Concomitant]
     Active Substance: METFORMIN HYDROCHLORIDE
     Indication: TYPE 2 DIABETES MELLITUS
     Dates: start: 20140314
  17. LUMIGAN [Concomitant]
     Active Substance: BIMATOPROST
     Indication: CATARACT
     Dates: start: 2007
  18. LASIX [Concomitant]
     Active Substance: FUROSEMIDE
     Indication: LEFT VENTRICULAR FAILURE
     Dates: start: 20140203
  19. K-DUR [Concomitant]
     Active Substance: POTASSIUM CHLORIDE
     Indication: HYPOKALAEMIA
     Dates: start: 20140210
  20. CRESTOR [Concomitant]
     Active Substance: ROSUVASTATIN CALCIUM
     Indication: DYSLIPIDAEMIA
     Dates: start: 20140206
  21. TIMOLOL XE [Concomitant]
     Indication: CATARACT
     Dates: start: 20130408

REACTIONS (1)
  - Anaemia [Recovered/Resolved]

NARRATIVE: CASE EVENT DATE: 20140725
